FAERS Safety Report 5664400-4 (Version None)
Quarter: 2008Q1

REPORT INFORMATION
  Report Type: 
  Country: None (occurrence: None)
  Receive Date: 20080314
  Receipt Date: 20080305
  Transmission Date: 20080703
  Serious: Yes (Other)
  Sender: FDA-Public Use
  Company Number: CA-JNJFOC-20080301569

PATIENT
  Age: 47 Year
  Sex: Female

DRUGS (7)
  1. REMICADE [Suspect]
     Route: 042
  2. REMICADE [Suspect]
     Indication: RHEUMATOID ARTHRITIS
     Route: 042
  3. ARAVA [Suspect]
     Indication: DRUG USE FOR UNKNOWN INDICATION
     Route: 048
  4. PREDNISONE [Concomitant]
     Route: 048
  5. PREMARIN [Concomitant]
     Route: 048
  6. TYLENOL (CAPLET) [Concomitant]
  7. ADVIL [Concomitant]

REACTIONS (3)
  - HYPOAESTHESIA ORAL [None]
  - PARAESTHESIA [None]
  - URINE OUTPUT INCREASED [None]
